FAERS Safety Report 11061599 (Version 2)
Quarter: 2015Q4

REPORT INFORMATION
  Report Type: Spontaneous
  Country: US (occurrence: US)
  Receive Date: 20150424
  Receipt Date: 20151021
  Transmission Date: 20160304
  Serious: No
  Sender: FDA-Public Use
  Company Number: US-PFIZER INC-2015138574

PATIENT
  Age: 33 Year
  Sex: Female
  Weight: 61 kg

DRUGS (9)
  1. METHYLPREDNISOLONE. [Suspect]
     Active Substance: METHYLPREDNISOLONE
     Indication: VULVOVAGINAL PAIN
  2. MONISTAT [Suspect]
     Active Substance: MICONAZOLE NITRATE
     Indication: VULVOVAGINAL BURNING SENSATION
  3. METHYLPREDNISOLONE. [Suspect]
     Active Substance: METHYLPREDNISOLONE
     Indication: VULVOVAGINAL BURNING SENSATION
  4. MONISTAT [Suspect]
     Active Substance: MICONAZOLE NITRATE
     Indication: VULVOVAGINAL PRURITUS
     Dosage: UNK
     Dates: start: 201503, end: 201503
  5. MONISTAT [Suspect]
     Active Substance: MICONAZOLE NITRATE
     Indication: VULVOVAGINAL PAIN
  6. DIFLUCAN [Suspect]
     Active Substance: FLUCONAZOLE
     Indication: VULVOVAGINAL BURNING SENSATION
  7. METHYLPREDNISOLONE. [Suspect]
     Active Substance: METHYLPREDNISOLONE
     Indication: VULVOVAGINAL PRURITUS
     Dosage: UNK
     Dates: start: 201504, end: 201504
  8. DIFLUCAN [Suspect]
     Active Substance: FLUCONAZOLE
     Indication: VULVOVAGINAL PRURITUS
     Dosage: UNK
     Dates: start: 201503, end: 201504
  9. DIFLUCAN [Suspect]
     Active Substance: FLUCONAZOLE
     Indication: VULVOVAGINAL PAIN

REACTIONS (1)
  - Drug ineffective [Unknown]
